FAERS Safety Report 4559742-X (Version None)
Quarter: 2005Q1

REPORT INFORMATION
  Report Type: 
  Country: None (occurrence: None)
  Receive Date: 20050114
  Receipt Date: 20040820
  Transmission Date: 20050727
  Serious: Yes (Hospitalization)
  Sender: FDA-Public Use
  Company Number: BDI-006405

PATIENT
  Age: 61 Year
  Sex: Female
  Weight: 77 kg

DRUGS (2)
  1. PROHANCE [Suspect]
     Indication: NUCLEAR MAGNETIC RESONANCE IMAGING
     Dosage: 17 ML ONCE IV
     Route: 042
     Dates: start: 20040820, end: 20040820
  2. PROHANCE [Suspect]
     Indication: VERTIGO
     Dosage: 17 ML ONCE IV
     Route: 042
     Dates: start: 20040820, end: 20040820

REACTIONS (7)
  - CHEST DISCOMFORT [None]
  - COUGH [None]
  - DEPRESSED LEVEL OF CONSCIOUSNESS [None]
  - DYSPNOEA [None]
  - OXYGEN SATURATION DECREASED [None]
  - SNEEZING [None]
  - SWELLING FACE [None]
